FAERS Safety Report 5915189-2 (Version None)
Quarter: 2008Q4

REPORT INFORMATION
  Report Type: 
  Country: None (occurrence: None)
  Receive Date: 20081010
  Receipt Date: 20080929
  Transmission Date: 20090506
  Serious: Yes (Hospitalization)
  Sender: FDA-Public Use
  Company Number: CA-JNJFOC-20081000062

PATIENT
  Sex: Female
  Weight: 110.2 kg

DRUGS (22)
  1. REMICADE [Suspect]
     Route: 042
  2. REMICADE [Suspect]
     Indication: RHEUMATOID ARTHRITIS
     Route: 042
  3. CORGARD [Concomitant]
     Indication: HYPERTENSION
     Route: 047
  4. VENTOLIN HFA [Concomitant]
     Indication: ASTHMA
     Route: 055
  5. FOLIC ACID [Concomitant]
     Indication: MEDICAL DIET
     Route: 048
  6. PANTOPRAZOLE SODIUM [Concomitant]
     Indication: DYSPEPSIA
     Route: 048
  7. CARBOCAL D [Concomitant]
     Indication: MEDICAL DIET
  8. BISOPROLOL [Concomitant]
     Route: 048
  9. BISOPROLOL [Concomitant]
     Indication: HYPERTENSION
     Route: 048
  10. NITROGLYCERIN [Concomitant]
     Indication: ANGINA PECTORIS
     Route: 060
  11. PLAQUENIL [Concomitant]
     Indication: RHEUMATOID ARTHRITIS
     Route: 048
  12. ACETAMINOPHEN [Concomitant]
     Indication: RHEUMATOID ARTHRITIS
     Route: 048
  13. FOSAMAX [Concomitant]
     Indication: OSTEOPOROSIS
     Route: 048
  14. SINGULAIR [Concomitant]
     Indication: ASTHMA
  15. EURO K [Concomitant]
     Indication: MEDICAL DIET
     Route: 048
  16. LIPITOR [Concomitant]
     Indication: BLOOD CHOLESTEROL
     Route: 048
  17. HYZAAR [Concomitant]
     Indication: HYPERTENSION
     Route: 048
  18. ADVAIR DISKUS 100/50 [Concomitant]
     Indication: ASTHMA
     Route: 055
  19. COUMADIN [Concomitant]
     Indication: ANGINA PECTORIS
     Route: 048
  20. PREDNISOLONE [Concomitant]
     Route: 048
  21. PREDNISOLONE [Concomitant]
     Indication: RHEUMATOID ARTHRITIS
     Route: 048
  22. NASONEX [Concomitant]
     Route: 055

REACTIONS (6)
  - ABDOMINAL DISTENSION [None]
  - ABDOMINAL PAIN [None]
  - ATELECTASIS [None]
  - BRONCHITIS [None]
  - CARDIOMEGALY [None]
  - FUNGAL OESOPHAGITIS [None]
